FAERS Safety Report 15268018 (Version 1)
Quarter: 2018Q3

REPORT INFORMATION
  Report Type: Spontaneous
  Country: US (occurrence: US)
  Receive Date: 20180725
  Receipt Date: 20180725
  Transmission Date: 20181010
  Serious: Yes (Disabling)
  Sender: FDA-Public Use
  Company Number: None

PATIENT
  Age: 64 Year
  Sex: Female
  Weight: 108 kg

DRUGS (6)
  1. SERTRALINE [Concomitant]
     Active Substance: SERTRALINE HYDROCHLORIDE
  2. SKIN AND NAILS GUMMIES [Concomitant]
  3. METFORMIN [Concomitant]
     Active Substance: METFORMIN HYDROCHLORIDE
  4. INVOCANA [Concomitant]
  5. FISH OIL [Concomitant]
     Active Substance: FISH OIL
  6. VALSARTAN 320?25 MG TAB [Suspect]
     Active Substance: VALSARTAN
     Indication: HYPERTENSION
     Dosage: ?          QUANTITY:1 TABLET(S);?
     Route: 048
     Dates: start: 20180618, end: 20180725

REACTIONS (4)
  - Chest discomfort [None]
  - Product substitution issue [None]
  - Product use issue [None]
  - Pain in extremity [None]

NARRATIVE: CASE EVENT DATE: 20180716
